FAERS Safety Report 4308783-6 (Version None)
Quarter: 2004Q1

REPORT INFORMATION
  Report Type: 
  Country: None (occurrence: None)
  Receive Date: 20040227
  Receipt Date: 20040227
  Transmission Date: 20041129
  Serious: No
  Sender: FDA-Public Use
  Company Number: None

PATIENT

DRUGS (3)
  1. TAXOTERE [Suspect]
     Indication: BREAST CANCER
     Dates: start: 20031218
  2. TAXOTERE [Suspect]
     Indication: BREAST CANCER
     Dates: start: 20040119
  3. TAXOTERE [Suspect]
     Indication: BREAST CANCER
     Dates: start: 20040209

REACTIONS (1)
  - PALMAR-PLANTAR ERYTHRODYSAESTHESIA SYNDROME [None]
